FAERS Safety Report 12254068 (Version 1)
Quarter: 2016Q2

REPORT INFORMATION
  Report Type: Spontaneous
  Country: US (occurrence: US)
  Receive Date: 20160411
  Receipt Date: 20160411
  Transmission Date: 20160815
  Serious: No
  Sender: FDA-Public Use
  Company Number: US-PERRIGO-15US013751

PATIENT
  Age: 44 Year
  Sex: Female

DRUGS (2)
  1. LEVOTHYROXINE                      /00068002/ [Concomitant]
     Indication: HYPOTHYROIDISM
     Dosage: 125 MCG
     Route: 048
  2. TRETINOIN. [Suspect]
     Active Substance: TRETINOIN
     Indication: ACNE
     Dosage: 1 APPLICATION, NIGHTLY OR EVERY OTHER NIGHT
     Route: 061
     Dates: start: 20150522, end: 20150716

REACTIONS (4)
  - Dry eye [Recovered/Resolved]
  - Eye irritation [Recovered/Resolved]
  - Vulvovaginal dryness [Recovered/Resolved]
  - Urine abnormality [Recovered/Resolved]

NARRATIVE: CASE EVENT DATE: 20150706
